FAERS Safety Report 24556288 (Version 3)
Quarter: 2024Q4

REPORT INFORMATION
  Report Type: Report from Study
  Country: JP (occurrence: JP)
  Receive Date: 20241028
  Receipt Date: 20241206
  Transmission Date: 20250114
  Serious: Yes (Hospitalization, Other)
  Sender: ALEXION PHARMACEUTICALS
  Company Number: JP-ASTRAZENECA-240104873_013120_P_1

PATIENT
  Age: 72 Year
  Weight: 46 kg

DRUGS (7)
  1. DURVALUMAB [Suspect]
     Active Substance: DURVALUMAB
     Indication: Non-small cell lung cancer
     Dosage: UNK
  2. DURVALUMAB [Suspect]
     Active Substance: DURVALUMAB
     Indication: Non-small cell lung cancer
  3. TREMELIMUMAB [Suspect]
     Active Substance: TREMELIMUMAB
     Indication: Non-small cell lung cancer
     Dosage: 75 MILLIGRAM, Q3W
  4. CARBOPLATIN [Concomitant]
     Active Substance: CARBOPLATIN
     Indication: Non-small cell lung cancer
     Dosage: NUMBER OF SEPARATE DOSAGES UNKNOWN
     Route: 065
  5. CARBOPLATIN [Concomitant]
     Active Substance: CARBOPLATIN
     Dosage: NUMBER OF SEPARATE DOSAGES UNKNOWN
     Route: 065
  6. PEMETREXED [Concomitant]
     Active Substance: PEMETREXED
     Indication: Non-small cell lung cancer
     Dosage: NUMBER OF SEPARATE DOSAGES UNKNOWN
     Route: 065
  7. PEMETREXED [Concomitant]
     Active Substance: PEMETREXED
     Dosage: NUMBER OF SEPARATE DOSAGES UNKNOWN
     Route: 065

REACTIONS (2)
  - Deep vein thrombosis [Not Recovered/Not Resolved]
  - Adrenal insufficiency [Not Recovered/Not Resolved]
